FAERS Safety Report 4551044-0 (Version None)
Quarter: 2005Q1

REPORT INFORMATION
  Report Type: 
  Country: None (occurrence: None)
  Receive Date: 20050113
  Receipt Date: 20040804
  Transmission Date: 20050727
  Serious: Yes (Hospitalization, Other)
  Sender: FDA-Public Use
  Company Number: US-BRISTOL-MYERS SQUIBB COMPANY-12660908

PATIENT
  Age: 16 Year
  Sex: Female

DRUGS (4)
  1. TRAZODONE HCL [Suspect]
     Indication: SLEEP DISORDER
     Route: 048
     Dates: start: 20000309, end: 20000411
  2. TRAZODONE HCL [Suspect]
     Route: 048
     Dates: start: 20000410, end: 20000410
  3. PAXIL [Suspect]
     Indication: DEPRESSION
     Route: 048
     Dates: start: 20000309, end: 20000411
  4. TYLENOL W/ CODEINE [Suspect]
     Route: 048
     Dates: start: 20000410, end: 20000410

REACTIONS (10)
  - DIZZINESS [None]
  - FATIGUE [None]
  - FEELING JITTERY [None]
  - FEELING OF DESPAIR [None]
  - HEADACHE [None]
  - INSOMNIA [None]
  - OVERDOSE [None]
  - SOMNOLENCE [None]
  - SUICIDE ATTEMPT [None]
  - SYNCOPE [None]
